FAERS Safety Report 8580894-9 (Version None)
Quarter: 2012Q3

REPORT INFORMATION
  Report Type: 
  Country: None (occurrence: None)
  Receive Date: 20120809
  Receipt Date: 20120731
  Transmission Date: 20120928
  Serious: Yes (Hospitalization)
  Sender: FDA-Public Use
  Company Number: US-BAYER-2010-002214

PATIENT
  Age: 48 Year
  Sex: Female
  Weight: 63 kg

DRUGS (9)
  1. VITAMIN B6 [Concomitant]
     Dosage: 50 MG,DAILY
  2. OGESTREL 0.5/50-21 [Concomitant]
     Dosage: UNK
     Dates: start: 20051101
  3. FERROUS SULFATE TAB [Concomitant]
     Dosage: 325 MG, TID
  4. FOLIC ACID [Concomitant]
     Dosage: 1 MG, DAILY
  5. ORAL CONTRACEPTIVE NOS [Concomitant]
     Dosage: UNK
     Dates: end: 20051109
  6. YASMIN [Suspect]
     Indication: CONTRACEPTION
     Dosage: UNK
     Route: 048
     Dates: start: 20061001, end: 20061101
  7. VITAMIN B-12 [Concomitant]
     Dosage: 500 MCG/24HR,DAILY
  8. COLACE [Concomitant]
     Dosage: 100 MG, UNK
  9. YAZ [Suspect]
     Indication: CONTRACEPTION
     Dosage: UNK
     Route: 048
     Dates: start: 20061001, end: 20061101

REACTIONS (2)
  - PULMONARY EMBOLISM [None]
  - DEEP VEIN THROMBOSIS [None]
